FAERS Safety Report 18727160 (Version 1)
Quarter: 2021Q1

REPORT INFORMATION
  Report Type: Spontaneous
  Country: JP (occurrence: JP)
  Receive Date: 20210112
  Receipt Date: 20210112
  Transmission Date: 20210419
  Serious: Yes (Other)
  Sender: FDA-Public Use
  Company Number: JP-LUPIN PHARMACEUTICALS INC.-2020-11650

PATIENT
  Age: 45 Year
  Sex: Female

DRUGS (2)
  1. ZINC ACETATE [Concomitant]
     Active Substance: ZINC ACETATE
     Indication: HEPATO-LENTICULAR DEGENERATION
     Dosage: UNK
     Route: 048
  2. PENICILLAMINE [Suspect]
     Active Substance: PENICILLAMINE
     Indication: HEPATO-LENTICULAR DEGENERATION
     Dosage: 800 MILLIGRAM, UNK (METALCAPTASE)
     Route: 065

REACTIONS (1)
  - Glomerulonephritis rapidly progressive [Unknown]
